FAERS Safety Report 19886792 (Version 1)
Quarter: 2021Q3

REPORT INFORMATION
  Report Type: Spontaneous
  Country: US (occurrence: US)
  Receive Date: 20210927
  Receipt Date: 20210927
  Transmission Date: 20211014
  Serious: Yes (Hospitalization)
  Sender: FDA-Public Use
  Company Number: US-ROCHE-2828398

PATIENT
  Age: 10 Year
  Sex: Male

DRUGS (2)
  1. HEMLIBRA [Suspect]
     Active Substance: EMICIZUMAB-KXWH
     Indication: FACTOR VIII DEFICIENCY
     Dosage: 60 MG/0.4 ML
     Route: 058
     Dates: start: 20181205
  2. HEMLIBRA [Suspect]
     Active Substance: EMICIZUMAB-KXWH
     Route: 065
     Dates: start: 20201101

REACTIONS (5)
  - Hand fracture [Unknown]
  - Haemorrhage [Recovered/Resolved]
  - Pain in extremity [Unknown]
  - Peripheral swelling [Unknown]
  - Face injury [Recovered/Resolved]

NARRATIVE: CASE EVENT DATE: 20210501
